FAERS Safety Report 10222060 (Version 1)
Quarter: 2014Q2

REPORT INFORMATION
  Report Type: Spontaneous
  Country: US (occurrence: None)
  Receive Date: 20140605
  Receipt Date: 20140605
  Transmission Date: 20141212
  Serious: Yes (Other)
  Sender: FDA-Public Use
  Company Number: None

PATIENT
  Age: 66 Year
  Sex: Female

DRUGS (1)
  1. AFINITOR 10MG NOVARTIS [Suspect]
     Indication: BREAST CANCER
     Dates: start: 20140101, end: 20140601

REACTIONS (5)
  - Influenza like illness [None]
  - Chills [None]
  - Pyrexia [None]
  - Nausea [None]
  - Dyspnoea [None]
